FAERS Safety Report 4375865-2 (Version None)
Quarter: 2004Q2

REPORT INFORMATION
  Report Type: 
  Country: None (occurrence: None)
  Receive Date: 20040609
  Receipt Date: 20040609
  Transmission Date: 20050107
  Serious: No
  Sender: FDA-Public Use
  Company Number: None

PATIENT
  Sex: Female
  Weight: 56.246 kg

DRUGS (1)
  1. AVELOX [Suspect]
     Indication: RESPIRATORY TRACT INFECTION
     Dosage: 1 TAB AT BEDTIME BRONCHITICS AND RESPIRATORY INFECTION
     Dates: start: 20031113, end: 20031123

REACTIONS (5)
  - DYSPEPSIA [None]
  - EATING DISORDER [None]
  - IMPAIRED GASTRIC EMPTYING [None]
  - SENSATION OF FOREIGN BODY [None]
  - WEIGHT DECREASED [None]
